FAERS Safety Report 9129871 (Version 1)
Quarter: 2013Q1

REPORT INFORMATION
  Report Type: Spontaneous
  Country: US (occurrence: US)
  Receive Date: 20130228
  Receipt Date: 20130228
  Transmission Date: 20140127
  Serious: No
  Sender: FDA-Public Use
  Company Number: US-PFIZER INC-2013072311

PATIENT
  Age: 56 Year
  Sex: Female
  Weight: 71.66 kg

DRUGS (3)
  1. LYRICA [Suspect]
     Indication: FIBROMYALGIA
     Dosage: 50 MG, 3X/DAY
     Route: 048
     Dates: end: 201208
  2. LISINOPRIL [Concomitant]
     Indication: HYPERTENSION
     Dosage: UNK
  3. POTASSIUM [Concomitant]
     Dosage: UNK

REACTIONS (4)
  - Insomnia [Unknown]
  - Pain [Unknown]
  - Activities of daily living impaired [Unknown]
  - Gait disturbance [Unknown]
